FAERS Safety Report 7137538-2 (Version None)
Quarter: 2010Q4

REPORT INFORMATION
  Report Type: 
  Country: None (occurrence: None)
  Receive Date: 20101206
  Receipt Date: 20101129
  Transmission Date: 20110411
  Serious: Yes (Hospitalization)
  Sender: FDA-Public Use
  Company Number: US-JNJFOC-20101200022

PATIENT
  Sex: Female

DRUGS (3)
  1. CONCERTA [Suspect]
     Indication: ILL-DEFINED DISORDER
     Route: 048
  2. NUVIGIL [Interacting]
     Indication: ILL-DEFINED DISORDER
     Route: 048
  3. WELLBUTRIN [Interacting]
     Indication: ILL-DEFINED DISORDER
     Route: 065

REACTIONS (2)
  - DRUG INTERACTION [None]
  - HOSPITALISATION [None]
